FAERS Safety Report 25398066 (Version 1)
Quarter: 2025Q2

REPORT INFORMATION
  Report Type: Spontaneous
  Country: US (occurrence: US)
  Receive Date: 20250604
  Receipt Date: 20250604
  Transmission Date: 20250716
  Serious: No
  Sender: MYCOVIA PHARMACEUTICALS, INC.
  Company Number: US-MYCOVIA PHARMACEUTICALS, INC.-US-MYC-25-00003

PATIENT

DRUGS (7)
  1. VIVJOA [Suspect]
     Active Substance: OTESECONAZOLE
     Indication: Vulvovaginal candidiasis
     Route: 048
     Dates: start: 20250321, end: 20250321
  2. VIVJOA [Suspect]
     Active Substance: OTESECONAZOLE
     Route: 048
     Dates: start: 20250322, end: 20250322
  3. VIVJOA [Suspect]
     Active Substance: OTESECONAZOLE
     Dosage: 150 MILLIGRAM, WEEKLY X 11 WEEKS
     Route: 048
     Dates: start: 20250403, end: 20250417
  4. SEREVENT DISKUS [Concomitant]
     Active Substance: SALMETEROL XINAFOATE
     Indication: Product used for unknown indication
  5. ARNUITY ELLIPTA [Concomitant]
     Active Substance: FLUTICASONE FUROATE
     Indication: Product used for unknown indication
  6. XYZAL [Concomitant]
     Active Substance: LEVOCETIRIZINE DIHYDROCHLORIDE
     Indication: Product used for unknown indication
  7. ARMOUR THYROID [Concomitant]
     Active Substance: THYROID, PORCINE
     Indication: Product used for unknown indication

REACTIONS (7)
  - Pruritus [Recovered/Resolved]
  - Rash erythematous [Recovered/Resolved]
  - Rash macular [Recovered/Resolved]
  - Cystitis [Recovering/Resolving]
  - Fungal infection [Recovering/Resolving]
  - Erythema [Unknown]
  - Pruritus [Unknown]

NARRATIVE: CASE EVENT DATE: 20250101
